FAERS Safety Report 5837840-8 (Version None)
Quarter: 2008Q3

REPORT INFORMATION
  Report Type: 
  Country: None (occurrence: None)
  Receive Date: 20080808
  Receipt Date: 20080102
  Transmission Date: 20090109
  Serious: No
  Sender: FDA-Public Use
  Company Number: A0701011A

PATIENT
  Age: 35 Year
  Sex: Male

DRUGS (3)
  1. PAXIL CR [Suspect]
     Indication: MOOD SWINGS
     Dosage: 50MG PER DAY
     Route: 048
     Dates: start: 20050101, end: 20071213
  2. WELLBUTRIN XL [Suspect]
     Indication: MOOD SWINGS
     Dosage: 300MG PER DAY
     Route: 048
     Dates: start: 20050101
  3. XANAX [Concomitant]

REACTIONS (5)
  - DIARRHOEA [None]
  - HEADACHE [None]
  - NAUSEA [None]
  - STOMACH DISCOMFORT [None]
  - VOMITING [None]
